FAERS Safety Report 8863287 (Version 1)
Quarter: 2012Q4

REPORT INFORMATION
  Report Type: 
  Country: US (occurrence: US)
  Receive Date: 20121025
  Receipt Date: 20121025
  Transmission Date: 20130627
  Serious: Yes (Hospitalization, Other)
  Sender: FDA-Public Use
  Company Number: US-ROCHE-1114126

PATIENT
  Sex: Male

DRUGS (3)
  1. RITUXAN [Suspect]
     Indication: HAIRY CELL LEUKAEMIA
     Route: 065
  2. RITUXAN [Suspect]
     Indication: OFF LABEL USE
  3. INTERFERON ALFA-2A [Suspect]
     Indication: HAIRY CELL LEUKAEMIA
     Route: 065

REACTIONS (10)
  - Pneumonia [Unknown]
  - Oedema peripheral [Unknown]
  - Weight decreased [Recovering/Resolving]
  - Pallor [Unknown]
  - Fatigue [Unknown]
  - Asthenia [Unknown]
  - Depression [Unknown]
  - Pain [Unknown]
  - Bone marrow failure [Unknown]
  - Haemolytic anaemia [Unknown]
